FAERS Safety Report 20513296 (Version 1)
Quarter: 2022Q1

REPORT INFORMATION
  Report Type: Spontaneous
  Country: US (occurrence: None)
  Receive Date: 20220224
  Receipt Date: 20220224
  Transmission Date: 20220423
  Serious: Yes (Hospitalization)
  Sender: FDA-Public Use
  Company Number: None

PATIENT
  Sex: Male

DRUGS (17)
  1. MYCOPHENOLIC ACID [Suspect]
     Active Substance: MYCOPHENOLIC ACID
     Indication: Renal transplant
     Dosage: FREQUENCY : TWICE A DAY;?
     Route: 048
     Dates: start: 20150709
  2. ALLOPURINOL [Concomitant]
     Active Substance: ALLOPURINOL
  3. ASPIRIN [Concomitant]
     Active Substance: ASPIRIN
  4. BARACLUDE [Concomitant]
     Active Substance: ENTECAVIR
  5. CELLCEPT [Concomitant]
     Active Substance: MYCOPHENOLATE MOFETIL
  6. FERROUS FUMARATE\FOLIC ACID [Concomitant]
     Active Substance: FERROUS FUMARATE\FOLIC ACID
  7. CLOTRIMAZOLE TRO [Concomitant]
  8. LIPITOR [Concomitant]
     Active Substance: ATORVASTATIN CALCIUM
  9. METOPROLOL [Concomitant]
     Active Substance: METOPROLOL
  10. PREDNISONE [Concomitant]
     Active Substance: PREDNISONE
  11. PROGRAF [Concomitant]
     Active Substance: TACROLIMUS
  12. PROTONIX [Concomitant]
     Active Substance: PANTOPRAZOLE SODIUM
  13. SMT-TMP [Concomitant]
  14. SODIUM BICAR [Concomitant]
  15. TACROLIMUS [Concomitant]
     Active Substance: TACROLIMUS
  16. VALCYTE [Concomitant]
     Active Substance: VALGANCICLOVIR HYDROCHLORIDE
  17. PYRIDOXINE [Concomitant]
     Active Substance: PYRIDOXINE

REACTIONS (2)
  - Therapy interrupted [None]
  - Surgery [None]
